FAERS Safety Report 23589852 (Version 1)
Quarter: 2024Q1

REPORT INFORMATION
  Report Type: Spontaneous
  Country: PL (occurrence: PL)
  Receive Date: 20240304
  Receipt Date: 20240304
  Transmission Date: 20240410
  Serious: Yes (Hospitalization, Other)
  Sender: FDA-Public Use
  Company Number: PL-URPL-DML-MLP.4401.1.710.2023

PATIENT
  Age: 17 Year
  Sex: Female
  Weight: 78 kg

DRUGS (1)
  1. ACETAMINOPHEN [Suspect]
     Active Substance: ACETAMINOPHEN
     Indication: Product used for unknown indication
     Dosage: 12 GRAM, ONCE A DAY(24 TABLET (500MG))
     Route: 048
     Dates: end: 20231212

REACTIONS (5)
  - Abdominal pain [Recovering/Resolving]
  - Poisoning deliberate [Recovering/Resolving]
  - Presyncope [Recovering/Resolving]
  - Toxicity to various agents [Recovering/Resolving]
  - Vomiting [Recovering/Resolving]

NARRATIVE: CASE EVENT DATE: 20231212
